FAERS Safety Report 9034953 (Version 2)
Quarter: 2013Q1

REPORT INFORMATION
  Report Type: Spontaneous
  Country: AU (occurrence: None)
  Receive Date: 20130115
  Receipt Date: 20130207
  Transmission Date: 20140127
  Serious: Yes (Life-Threatening, Hospitalization, Other)
  Sender: FDA-Public Use
  Company Number: 2012-18699

PATIENT
  Age: 14 Year
  Sex: Female

DRUGS (3)
  1. FLUOXETINE HYDROCHLORIDE [Suspect]
     Indication: DEPRESSION
     Dosage: /DAY
     Dates: start: 20120706
  2. PARACETAMOL (UNKNOWN) (PARACETAMOL) UNK, UNKUNK [Suspect]
     Indication: PRODUCT USED FOR UNKNOWN INDICATION
  3. ZYPREXA (OLANZAPINE) [Concomitant]

REACTIONS (4)
  - Suicidal behaviour [None]
  - Suicide attempt [None]
  - Suicidal ideation [None]
  - Intentional overdose [None]
